FAERS Safety Report 9904552 (Version 1)
Quarter: 2014Q1

REPORT INFORMATION
  Report Type: Spontaneous
  Country: TR (occurrence: TR)
  Receive Date: 20140218
  Receipt Date: 20140218
  Transmission Date: 20141002
  Serious: Yes (Hospitalization)
  Sender: FDA-Public Use
  Company Number: TR-NOVOPROD-400237

PATIENT
  Age: 64 Year
  Sex: Male
  Weight: 107 kg

DRUGS (1)
  1. MIXTARD 30 PENFILL [Suspect]
     Indication: DIABETES MELLITUS
     Dosage: UNKNOWN
     Route: 065
     Dates: end: 20140102

REACTIONS (1)
  - Deafness [Unknown]
